FAERS Safety Report 16301161 (Version 4)
Quarter: 2019Q4

REPORT INFORMATION
  Report Type: Report from Study
  Country: US (occurrence: US)
  Receive Date: 20190510
  Receipt Date: 20191127
  Transmission Date: 20200122
  Serious: Yes (Hospitalization)
  Sender: FDA-Public Use
  Company Number: US-ACTELION-A-NJ2018-183083

PATIENT
  Age: 61 Year
  Sex: Female
  Weight: 94.79 kg

DRUGS (41)
  1. ZYLOPRIM [Concomitant]
     Active Substance: ALLOPURINOL
     Indication: GOUT
     Dosage: 100 MG, QD
     Route: 048
     Dates: start: 20180426
  2. ASPIRIN. [Concomitant]
     Active Substance: ASPIRIN
     Indication: ISCHAEMIC HEART DISEASE PROPHYLAXIS
     Dosage: 81 MG, QD
     Route: 048
     Dates: start: 20190118
  3. LIPITOR [Concomitant]
     Active Substance: ATORVASTATIN CALCIUM
     Indication: HYPERLIPIDAEMIA
     Dosage: 40 MG, QD
  4. DEEP SEA PREMIUM SALINE [Concomitant]
     Indication: NASAL CONGESTION
  5. OPSUMIT [Concomitant]
     Active Substance: MACITENTAN
     Indication: PULMONARY ARTERIAL HYPERTENSION
     Dosage: 10 MG, QD
     Route: 048
     Dates: start: 20180430
  6. SILDENAFIL. [Concomitant]
     Active Substance: SILDENAFIL
     Indication: PULMONARY ARTERIAL HYPERTENSION
     Dosage: 20 MG, TID
     Route: 048
     Dates: start: 20181220
  7. OXYGEN. [Concomitant]
     Active Substance: OXYGEN
     Dosage: 4 L/MIN
  8. TYLENOL [Concomitant]
     Active Substance: ACETAMINOPHEN
     Indication: BACK PAIN
     Dosage: 500 MG, Q6HRS, PRN
     Route: 048
     Dates: start: 20181225
  9. DEEP SEA PREMIUM SALINE [Concomitant]
     Indication: PULMONARY HYPERTENSION
  10. COLCHICINE. [Concomitant]
     Active Substance: COLCHICINE
     Indication: GOUT
  11. METOLAZONE. [Concomitant]
     Active Substance: METOLAZONE
     Dosage: 2.5 MG
  12. TORSEMIDE. [Concomitant]
     Active Substance: TORSEMIDE
     Dosage: 100 MG, QD
  13. MELATONIN [Concomitant]
     Active Substance: MELATONIN
     Indication: INSOMNIA
     Dosage: 3 MG AT BEDTIME
  14. TRAZODONE [Concomitant]
     Active Substance: TRAZODONE HYDROCHLORIDE
     Indication: INSOMNIA
     Dosage: 100 MG AT BEDTIME
  15. UPTRAVI [Suspect]
     Active Substance: SELEXIPAG
     Dosage: 200 MCG, BID
     Route: 048
     Dates: start: 20181120
  16. OXYGEN. [Concomitant]
     Active Substance: OXYGEN
     Dosage: 3 L/MIN
  17. OXYGEN. [Concomitant]
     Active Substance: OXYGEN
     Dosage: 6 L/MIN
  18. UMECLIDINIUM W/VILANTEROL [Concomitant]
     Dosage: 62.5-25 MCG, AT BEDTIME
     Route: 048
  19. VITAMIN D [Concomitant]
     Active Substance: VITAMIN D NOS
     Dosage: 50000 UNITS, Q1WEEK
     Route: 048
     Dates: start: 20181127
  20. ALDACTONE [Concomitant]
     Active Substance: SPIRONOLACTONE
     Indication: PULMONARY HYPERTENSION
  21. ANORO ELLIPTA [Concomitant]
     Active Substance: UMECLIDINIUM BROMIDE\VILANTEROL TRIFENATATE
     Indication: RESPIRATORY DISORDER PROPHYLAXIS
     Dosage: 1 PUFF, QD
     Route: 055
     Dates: start: 20180426
  22. UPTRAVI [Suspect]
     Active Substance: SELEXIPAG
     Dosage: 400 MCG, QD
     Route: 048
  23. VENTOLIN HFA [Concomitant]
     Active Substance: ALBUTEROL SULFATE
     Indication: WHEEZING
     Dosage: 2 PUFF, Q6HRS, PRN
     Route: 055
     Dates: start: 20180403
  24. MIRALAX [Concomitant]
     Active Substance: POLYETHYLENE GLYCOL 3350
     Dosage: MIX 1 CAP (17GM TOTAL) INTO 8 OUNCES LIQUID, DRINK BID
     Route: 048
     Dates: start: 20190118
  25. ALDACTONE [Concomitant]
     Active Substance: SPIRONOLACTONE
     Indication: OEDEMA
     Dosage: 50 MG, QD
     Route: 048
     Dates: start: 20181220
  26. UPTRAVI [Suspect]
     Active Substance: SELEXIPAG
     Indication: PULMONARY HYPERTENSION
     Dosage: 400 MCG, BID
     Route: 048
     Dates: start: 20190416
  27. UPTRAVI [Suspect]
     Active Substance: SELEXIPAG
     Dosage: 200 MCG, BID
     Route: 048
     Dates: start: 20190102
  28. UPTRAVI [Suspect]
     Active Substance: SELEXIPAG
     Dosage: 800 MCG, BID
     Route: 048
  29. NORVASC [Concomitant]
     Active Substance: AMLODIPINE BESYLATE
     Dosage: 5 MG, QD
     Route: 048
     Dates: start: 20181015
  30. LANTUS [Concomitant]
     Active Substance: INSULIN GLARGINE
     Indication: TYPE 2 DIABETES MELLITUS
     Dosage: 33 UNITS, QPM
     Route: 058
     Dates: start: 20180727
  31. DESYREL [Concomitant]
     Active Substance: TRAZODONE HYDROCHLORIDE
     Indication: AFFECTIVE DISORDER
     Dosage: 100 MG, QPM
     Route: 048
     Dates: start: 20181220
  32. INSULIN GLARGINE [Concomitant]
     Active Substance: INSULIN GLARGINE
     Dosage: 15 UNITS AT BEDTIME
     Route: 058
  33. INSULIN ASPART [Concomitant]
     Active Substance: INSULIN ASPART
     Indication: TYPE 2 DIABETES MELLITUS
     Dosage: 10-15 UNITS, TID BEFORE MEALS
     Route: 058
     Dates: start: 20180508
  34. LANTUS [Concomitant]
     Active Substance: INSULIN GLARGINE
     Dosage: 28 UNITS QPM
  35. PROTONIX [Concomitant]
     Active Substance: PANTOPRAZOLE SODIUM
     Dosage: 40 MG, BID
     Route: 048
     Dates: start: 20181108
  36. DEEP SEA PREMIUM SALINE [Concomitant]
     Indication: NASAL DRYNESS
     Dosage: 0.65%, 1 SPRAY EACH NOSTRIL, PRN
     Route: 045
     Dates: start: 20180828
  37. SPIRONOLACTONE. [Concomitant]
     Active Substance: SPIRONOLACTONE
     Dosage: 50 MG, QD
  38. OXYGEN. [Concomitant]
     Active Substance: OXYGEN
     Dosage: 5 L/MIN
  39. PERCOCET [Concomitant]
     Active Substance: ACETAMINOPHEN\OXYCODONE HYDROCHLORIDE
     Indication: PAIN
     Dosage: 1 TABLET (10-325MG), Q6HRS, PRN
     Route: 048
     Dates: start: 20181227
  40. DEMADEX [Concomitant]
     Active Substance: TORSEMIDE
     Indication: OEDEMA
     Dosage: 100 MG, QD, PRN
     Route: 048
     Dates: start: 20181220
  41. BISOPROLOL [Concomitant]
     Active Substance: BISOPROLOL
     Dosage: 5 MG

REACTIONS (33)
  - Weight increased [Unknown]
  - Oxygen consumption increased [Recovering/Resolving]
  - Dyspnoea [Recovering/Resolving]
  - Abdominal pain [Recovered/Resolved]
  - Circulatory collapse [Recovered/Resolved]
  - Blood creatinine increased [Recovering/Resolving]
  - Troponin increased [Recovering/Resolving]
  - Fall [Unknown]
  - Bronchial wall thickening [Unknown]
  - Cardiac failure acute [Recovered/Resolved]
  - Hypotension [Unknown]
  - Peripheral swelling [Unknown]
  - Pulmonary arterial pressure increased [Unknown]
  - Pain in extremity [Unknown]
  - Pleural effusion [Not Recovered/Not Resolved]
  - Respiratory failure [Recovered/Resolved]
  - Pulmonary arterial hypertension [Recovering/Resolving]
  - Myocardial ischaemia [Unknown]
  - Immobile [Unknown]
  - Right ventricular failure [Recovered/Resolved]
  - Fluid overload [Recovering/Resolving]
  - Pleuritic pain [Unknown]
  - Nasopharyngitis [Unknown]
  - Localised oedema [Recovering/Resolving]
  - Atelectasis [Unknown]
  - Pericardial effusion [Not Recovered/Not Resolved]
  - Pulmonary oedema [Unknown]
  - Cardiac failure [Recovered/Resolved]
  - Pulmonary hypertension [Recovered/Resolved]
  - Rales [Unknown]
  - Syncope [Recovered/Resolved]
  - Fatigue [Unknown]
  - Diverticulum [Unknown]

NARRATIVE: CASE EVENT DATE: 20181128
